FAERS Safety Report 8356788-0 (Version None)
Quarter: 2012Q2

REPORT INFORMATION
  Report Type: 
  Country: None (occurrence: None)
  Receive Date: 20120511
  Receipt Date: 20120511
  Transmission Date: 20120825
  Serious: Yes (Hospitalization)
  Sender: FDA-Public Use
  Company Number: None

PATIENT
  Sex: Female
  Weight: 74.9 kg

DRUGS (5)
  1. PEPCID [Concomitant]
  2. VORINOSTAT [Suspect]
     Indication: BREAST CANCER
     Dosage: 300MG PO QD D 1-14
     Route: 048
     Dates: start: 20120416, end: 20120424
  3. ZOLOFT [Concomitant]
  4. IXEMPRA KIT [Suspect]
     Indication: BREAST CANCER
     Dosage: 32MG/M2 IV Q 3 WKS
     Route: 042
     Dates: start: 20120416
  5. IMODIUM [Concomitant]

REACTIONS (5)
  - DIARRHOEA [None]
  - REFUSAL OF TREATMENT BY PATIENT [None]
  - DEHYDRATION [None]
  - ABDOMINAL PAIN [None]
  - APHAGIA [None]
